FAERS Safety Report 7962029-6 (Version None)
Quarter: 2011Q4

REPORT INFORMATION
  Report Type: 
  Country: None (occurrence: None)
  Receive Date: 20111207
  Receipt Date: 20111130
  Transmission Date: 20120403
  Serious: Yes (Other)
  Sender: FDA-Public Use
  Company Number: NL-CEPHALON-2011005586

PATIENT
  Sex: Female

DRUGS (8)
  1. MODAFANIL [Suspect]
     Indication: NARCOLEPSY
     Route: 048
     Dates: start: 20110719, end: 20111028
  2. METAMUCIL-2 [Concomitant]
  3. POLYETHYLENE GLYCOL [Concomitant]
  4. EBASTINE [Concomitant]
  5. VENTOLIN [Concomitant]
  6. MAGNESIUM HYDROXIDE [Concomitant]
  7. OMEPRAZOLE [Concomitant]
  8. DOMPERIDON [Concomitant]

REACTIONS (8)
  - SPEECH DISORDER [None]
  - MUSCLE SPASMS [None]
  - CHEST PAIN [None]
  - MUSCULAR WEAKNESS [None]
  - WEIGHT DECREASED [None]
  - MUSCULAR DYSTROPHY [None]
  - SKIN ODOUR ABNORMAL [None]
  - DECREASED APPETITE [None]
